FAERS Safety Report 8992263 (Version 1)
Quarter: 2012Q4

REPORT INFORMATION
  Report Type: 
  Country: US (occurrence: US)
  Receive Date: 20121231
  Receipt Date: 20121231
  Transmission Date: 20130627
  Serious: Yes (Hospitalization, Other)
  Sender: FDA-Public Use
  Company Number: US-AMGEN-USASP2012083813

PATIENT
  Sex: Female

DRUGS (9)
  1. ENBREL [Suspect]
     Indication: PSORIATIC ARTHROPATHY
     Dosage: 50 mg, qwk
     Route: 058
  2. ENBREL [Suspect]
     Indication: RHEUMATOID ARTHRITIS
  3. CELEBREX [Concomitant]
     Dosage: 200 mg, UNK
  4. SULFASALAZIN [Concomitant]
     Dosage: 500 mg, UNK
  5. HYDROXYCHLOROQUINE [Concomitant]
     Dosage: 200 mg, UNK
  6. MICARDIS [Concomitant]
     Dosage: 20 mg, UNK
  7. ATENOLOL [Concomitant]
     Dosage: 50 mg, UNK
  8. AMLODIPINE [Concomitant]
     Dosage: 5 mg, UNK
  9. JANUMET [Concomitant]
     Dosage: 50-1000

REACTIONS (4)
  - Pathological fracture [Unknown]
  - Femur fracture [Unknown]
  - Ankle fracture [Unknown]
  - Infection [Unknown]
